FAERS Safety Report 6176941-4 (Version None)
Quarter: 2009Q2

REPORT INFORMATION
  Report Type: 
  Country: None (occurrence: None)
  Receive Date: 20090501
  Receipt Date: 20090116
  Transmission Date: 20091009
  Serious: Yes (Hospitalization, Other)
  Sender: FDA-Public Use
  Company Number: US-ALEXION-A200800433

PATIENT
  Sex: Male

DRUGS (11)
  1. SOLIRIS [Suspect]
     Indication: PAROXYSMAL NOCTURNAL HAEMOGLOBINURIA
     Dosage: UNK
     Route: 042
  2. SOLIRIS [Suspect]
     Dosage: 900 MG, UNK
     Route: 042
     Dates: start: 20070517
  3. SOLIRIS [Suspect]
     Dosage: 1200 MG, QW
     Route: 042
  4. COMBIVENT                          /01033501/ [Concomitant]
  5. ARIXTRA [Concomitant]
  6. ALBUTEROL [Concomitant]
  7. DILAUDID [Concomitant]
  8. OMEPRAZOLE [Concomitant]
  9. VERAPAMIL [Concomitant]
     Dosage: UNK
  10. VITAMIN B1 TAB [Concomitant]
     Dosage: UNK
  11. CHERATUSSIN                        /01240701/ [Concomitant]
     Dosage: UNK

REACTIONS (3)
  - FEELING ABNORMAL [None]
  - HAEMOGLOBIN DECREASED [None]
  - UPPER RESPIRATORY TRACT INFECTION [None]
